FAERS Safety Report 19435561 (Version 1)
Quarter: 2021Q2

REPORT INFORMATION
  Report Type: Spontaneous
  Country: US (occurrence: US)
  Receive Date: 20210618
  Receipt Date: 20210618
  Transmission Date: 20210717
  Serious: No
  Sender: FDA-Public Use
  Company Number: US-BAYER-2021-159509

PATIENT
  Age: 77 Year

DRUGS (1)
  1. MIRALAX [Suspect]
     Active Substance: POLYETHYLENE GLYCOL 3350
     Indication: COLONOSCOPY
     Dosage: UNK
     Route: 048
     Dates: start: 20210408, end: 20210616

REACTIONS (3)
  - Incorrect product administration duration [None]
  - Dizziness [None]
  - Off label use [None]

NARRATIVE: CASE EVENT DATE: 20210408
